FAERS Safety Report 4828870-3 (Version None)
Quarter: 2005Q4

REPORT INFORMATION
  Report Type: 
  Country: None (occurrence: None)
  Receive Date: 20051014
  Receipt Date: 20050711
  Transmission Date: 20060501
  Serious: No
  Sender: FDA-Public Use
  Company Number: 2005SP001823

PATIENT
  Age: 50 Year
  Sex: Female
  Weight: 77.1115 kg

DRUGS (3)
  1. LUNESTA [Suspect]
     Indication: INSOMNIA
     Dosage: 1 MG; ORAL; SEE IMAGE
     Route: 048
     Dates: start: 20050601, end: 20050101
  2. LUNESTA [Suspect]
     Indication: INSOMNIA
     Dosage: 1 MG; ORAL; SEE IMAGE
     Route: 048
     Dates: start: 20050101
  3. AMBIEN [Concomitant]

REACTIONS (2)
  - DRUG INEFFECTIVE [None]
  - INSOMNIA [None]
